FAERS Safety Report 7469843-4 (Version None)
Quarter: 2011Q2

REPORT INFORMATION
  Report Type: 
  Country: None (occurrence: None)
  Receive Date: 20110510
  Receipt Date: 20110427
  Transmission Date: 20111010
  Serious: Yes (Hospitalization)
  Sender: FDA-Public Use
  Company Number: US-AMGEN-USASP2011022153

PATIENT
  Age: 58 Year
  Sex: Male

DRUGS (1)
  1. ENBREL [Suspect]
     Indication: RHEUMATOID ARTHRITIS
     Dosage: 25 MG, QWK
     Dates: start: 20090224

REACTIONS (7)
  - CONTUSION [None]
  - TONSILLITIS [None]
  - PLEURISY [None]
  - BRONCHITIS [None]
  - INJECTION SITE SWELLING [None]
  - PNEUMONIA [None]
  - COUGH [None]
